FAERS Safety Report 9414651 (Version 2)
Quarter: 2013Q3

REPORT INFORMATION
  Report Type: Spontaneous
  Country: PK (occurrence: PK)
  Receive Date: 20130723
  Receipt Date: 20130808
  Transmission Date: 20140515
  Serious: Yes (Other)
  Sender: FDA-Public Use
  Company Number: PK-PFIZER INC-2013183101

PATIENT
  Age: 55 Year
  Sex: Male

DRUGS (1)
  1. SUTENT [Suspect]
     Indication: GASTROINTESTINAL STROMAL TUMOUR
     Dosage: 50 MG, CYCLIC (DAILY)
     Route: 048
     Dates: start: 201305, end: 201306

REACTIONS (4)
  - Paraesthesia [Recovered/Resolved]
  - Rash erythematous [Recovered/Resolved]
  - Yellow skin [Recovering/Resolving]
  - Decreased appetite [Recovered/Resolved]
